FAERS Safety Report 7564383-6 (Version None)
Quarter: 2011Q2

REPORT INFORMATION
  Report Type: 
  Country: None (occurrence: None)
  Receive Date: 20110622
  Receipt Date: 20110609
  Transmission Date: 20111010
  Serious: Yes (Hospitalization)
  Sender: FDA-Public Use
  Company Number: PHHY2011FR50612

PATIENT
  Sex: Male

DRUGS (11)
  1. IMOVANE [Concomitant]
     Dosage: 3.75 MG, PER DAY
     Route: 048
  2. LANTUS [Concomitant]
     Dosage: 15 IU, PER DAY
     Route: 058
  3. TEGRETOL [Suspect]
     Dosage: 200 MG, BID
     Route: 048
  4. PHENOBARBITAL TAB [Concomitant]
     Dosage: 50 MG, PER DAY
     Route: 048
     Dates: end: 20110430
  5. PHENOBARBITAL TAB [Concomitant]
     Dosage: 40 MG, QD
     Dates: start: 20110430
  6. TEGRETOL [Suspect]
     Dosage: 400 MG, BID
  7. FORLAX [Concomitant]
     Dosage: 1 DF, BID
     Route: 048
  8. ASPIRIN [Concomitant]
     Dosage: 75 MG, PER DAY
  9. DEDROGYL [Concomitant]
     Dosage: 5 DRP, DAILY
  10. ACETAMINOPHEN [Concomitant]
     Dosage: 2 TABLETS OF 500 MG PER DAY
     Route: 048
  11. AMLODIPINE BESYLATE [Concomitant]
     Dosage: 5 MG, PER DAY
     Route: 048

REACTIONS (6)
  - BLOOD OSMOLARITY DECREASED [None]
  - PYELONEPHRITIS ACUTE [None]
  - ANTICONVULSANT DRUG LEVEL INCREASED [None]
  - DISTURBANCE IN ATTENTION [None]
  - HYPERTHERMIA [None]
  - HYPONATRAEMIA [None]
